FAERS Safety Report 23127136 (Version 1)
Quarter: 2023Q4

REPORT INFORMATION
  Report Type: Report from Study
  Country: US (occurrence: US)
  Receive Date: 20231030
  Receipt Date: 20231030
  Transmission Date: 20240109
  Serious: Yes (Other)
  Sender: FDA-Public Use
  Company Number: US-SA-SAC20231026000684

PATIENT
  Age: 58 Year
  Sex: Male

DRUGS (1)
  1. AGALSIDASE BETA [Suspect]
     Active Substance: AGALSIDASE BETA
     Indication: Fabry^s disease
     Dosage: 90 (UNKNOWN UNITS), QOW
     Route: 042
     Dates: start: 20120330, end: 20230905

REACTIONS (4)
  - Unresponsive to stimuli [Recovered/Resolved]
  - Heart rate decreased [Recovered/Resolved]
  - Nausea [Recovered/Resolved]
  - Fall [Recovered/Resolved]

NARRATIVE: CASE EVENT DATE: 20230905
